FAERS Safety Report 22740805 (Version 3)
Quarter: 2023Q4

REPORT INFORMATION
  Report Type: Report from Study
  Country: CO (occurrence: CO)
  Receive Date: 20230724
  Receipt Date: 20231022
  Transmission Date: 20240110
  Serious: Yes (Other)
  Sender: FDA-Public Use
  Company Number: CO-ABBVIE-5337897

PATIENT
  Sex: Male
  Weight: 65 kg

DRUGS (2)
  1. ZEMPLAR [Suspect]
     Active Substance: PARICALCITOL
     Indication: Hyperparathyroidism secondary
     Dosage: POST DIALYSIS, FORM STRENGTH 5 MICROGRAM
     Route: 042
     Dates: start: 20230322, end: 20230717
  2. ZEMPLAR [Suspect]
     Active Substance: PARICALCITOL
     Indication: Hyperparathyroidism secondary
     Dosage: START DATE : 2023?POST DIALYSIS, FORM STRENGTH 5 MICROGRAM
     Route: 042
     Dates: end: 20231013

REACTIONS (7)
  - Pulmonary oedema [Not Recovered/Not Resolved]
  - Blood phosphorus abnormal [Recovered/Resolved]
  - Arthralgia [Not Recovered/Not Resolved]
  - Cardiac disorder [Not Recovered/Not Resolved]
  - Bone disorder [Not Recovered/Not Resolved]
  - Blood potassium abnormal [Not Recovered/Not Resolved]
  - Blood phosphorus abnormal [Not Recovered/Not Resolved]

NARRATIVE: CASE EVENT DATE: 20230101
